FAERS Safety Report 21265685 (Version 1)
Quarter: 2022Q3

REPORT INFORMATION
  Report Type: Spontaneous
  Country: US (occurrence: None)
  Receive Date: 20220828
  Receipt Date: 20220828
  Transmission Date: 20221027
  Serious: No
  Sender: FDA-Public Use
  Company Number: None

PATIENT
  Age: 25 Year
  Sex: Male
  Weight: 51.75 kg

DRUGS (6)
  1. CIPROFLOXACIN [Suspect]
     Active Substance: CIPROFLOXACIN
     Dates: start: 20220817, end: 20220821
  2. MAGNESIUM [Concomitant]
     Active Substance: MAGNESIUM
  3. VITAMIN D [Concomitant]
     Active Substance: VITAMIN D NOS
  4. VITAMIN C [Concomitant]
     Active Substance: ASCORBIC ACID
  5. PROBIOTIC GUMMIES [Concomitant]
  6. COENZYME Q10 [Concomitant]
     Active Substance: DIETARY SUPPLEMENT\UBIDECARENONE

REACTIONS (13)
  - Arthralgia [None]
  - Arthralgia [None]
  - Pain in extremity [None]
  - Pain in extremity [None]
  - Pain in extremity [None]
  - Chest pain [None]
  - Depression [None]
  - Anxiety [None]
  - Suicidal ideation [None]
  - Nausea [None]
  - Fatigue [None]
  - Dizziness [None]
  - Toxicity to various agents [None]
